FAERS Safety Report 12197106 (Version 26)
Quarter: 2018Q3

REPORT INFORMATION
  Report Type: Spontaneous
  Country: US (occurrence: US)
  Receive Date: 20160321
  Receipt Date: 20180925
  Transmission Date: 20181010
  Serious: Yes (Hospitalization)
  Sender: FDA-Public Use
  Company Number: US-ACTELION-A-US2016-133252

PATIENT
  Age: 19 Year
  Sex: Male
  Weight: 83.45 kg

DRUGS (6)
  1. ADCIRCA [Concomitant]
     Active Substance: TADALAFIL
  2. VELETRI [Suspect]
     Active Substance: EPOPROSTENOL
     Indication: PULMONARY ARTERIAL HYPERTENSION
     Dosage: 64 NG/KG, PER MIN
     Route: 042
     Dates: start: 20151012
  3. COUMADIN [Concomitant]
     Active Substance: WARFARIN SODIUM
  4. VELETRI [Suspect]
     Active Substance: EPOPROSTENOL
     Dosage: 70 NG/KG, PER MIN
     Route: 042
  5. OPSUMIT [Suspect]
     Active Substance: MACITENTAN
     Indication: PULMONARY ARTERIAL HYPERTENSION
     Dosage: 10 MG, QD
     Route: 048
     Dates: start: 20150312
  6. VELETRI [Suspect]
     Active Substance: EPOPROSTENOL
     Dosage: 68 NG/KG, PER MIN
     Route: 042

REACTIONS (12)
  - Complication associated with device [Unknown]
  - Erythema [Unknown]
  - Catheter management [Unknown]
  - Pain in jaw [Unknown]
  - Condition aggravated [Recovering/Resolving]
  - Device related infection [Unknown]
  - Pyrexia [Unknown]
  - Dyspnoea exertional [Unknown]
  - Fluid retention [Recovering/Resolving]
  - Catheter site infection [Unknown]
  - Flushing [Unknown]
  - Staphylococcal bacteraemia [Unknown]
